FAERS Safety Report 10346964 (Version 1)
Quarter: 2014Q3

REPORT INFORMATION
  Report Type: Spontaneous
  Country: US (occurrence: None)
  Receive Date: 20140725
  Receipt Date: 20140725
  Transmission Date: 20150326
  Serious: No
  Sender: FDA-Public Use
  Company Number: None

PATIENT
  Age: 14 Year
  Sex: Female
  Weight: 46.27 kg

DRUGS (1)
  1. OCEAN POTION INSTANT DRY 50 MIST SUNSCREEN [Suspect]
     Active Substance: AVOBENZONE\HOMOSALATE\OCTISALATE\OCTOCRYLENE
     Indication: PROPHYLAXIS AGAINST SOLAR RADIATION
     Route: 058
     Dates: start: 20140620, end: 20140717

REACTIONS (1)
  - Alopecia [None]

NARRATIVE: CASE EVENT DATE: 20140704
